FAERS Safety Report 19156427 (Version 1)
Quarter: 2021Q2

REPORT INFORMATION
  Report Type: Spontaneous
  Country: US (occurrence: US)
  Receive Date: 20210419
  Receipt Date: 20210419
  Transmission Date: 20210717
  Serious: No
  Sender: FDA-Public Use
  Company Number: US-AMGEN-USA-20200407398

PATIENT
  Sex: Female

DRUGS (5)
  1. DULOXETINE. [Concomitant]
     Active Substance: DULOXETINE
     Dosage: UNK
  2. VITAMIN D3 [Concomitant]
     Active Substance: CHOLECALCIFEROL
     Dosage: UNK
  3. OTEZLA [Suspect]
     Active Substance: APREMILAST
     Dosage: 30 MILLIGRAM, BID
     Route: 048
  4. OTEZLA [Suspect]
     Active Substance: APREMILAST
     Indication: PSORIASIS
     Dosage: UNK
     Route: 048
  5. MELATONIN [Concomitant]
     Active Substance: MELATONIN
     Dosage: UNK

REACTIONS (1)
  - Product dose omission issue [Unknown]
